FAERS Safety Report 9846314 (Version 1)
Quarter: 2014Q1

REPORT INFORMATION
  Report Type: Report from Study
  Country: DE (occurrence: DE)
  Receive Date: 20140127
  Receipt Date: 20140127
  Transmission Date: 20141002
  Serious: Yes (Hospitalization)
  Sender: FDA-Public Use
  Company Number: DE-IPSEN BIOPHARMACEUTICALS, INC.-2014-0342

PATIENT
  Age: 68 Year
  Sex: Female
  Weight: 70.1 kg

DRUGS (5)
  1. SOMATULINE AUTOGEL 90 MG [Suspect]
     Indication: ACROMEGALY
     Dosage: 90 MG
     Route: 058
     Dates: start: 20130718, end: 20131205
  2. OMEPRAZOL [Concomitant]
     Indication: PRODUCT USED FOR UNKNOWN INDICATION
     Route: 065
     Dates: start: 2003
  3. METOBETA [Concomitant]
     Indication: PRODUCT USED FOR UNKNOWN INDICATION
     Route: 065
     Dates: start: 2003
  4. CANDESARTAN [Concomitant]
     Indication: PRODUCT USED FOR UNKNOWN INDICATION
     Route: 065
     Dates: start: 2003
  5. TRAMAL LONG [Concomitant]
     Indication: PRODUCT USED FOR UNKNOWN INDICATION
     Route: 065
     Dates: start: 2003

REACTIONS (1)
  - Pituitary tumour removal [Recovering/Resolving]
